FAERS Safety Report 16370776 (Version 1)
Quarter: 2019Q2

REPORT INFORMATION
  Report Type: Spontaneous
  Country: VN (occurrence: VN)
  Receive Date: 20190530
  Receipt Date: 20190530
  Transmission Date: 20190711
  Serious: Yes (Hospitalization)
  Sender: FDA-Public Use
  Company Number: VN-BAYER-2019-100477

PATIENT
  Age: 78 Year
  Sex: Female

DRUGS (1)
  1. CIPROBAY 400/200 MG/ML [Suspect]
     Active Substance: CIPROFLOXACIN HYDROCHLORIDE
     Indication: ASTHMA
     Dosage: 400 MG, BID
     Route: 042
     Dates: start: 20190501, end: 20190514

REACTIONS (8)
  - Injection site pain [None]
  - Thrombosis [None]
  - Arterial occlusive disease [None]
  - Hepatic enzyme increased [None]
  - Injection site erythema [None]
  - Injection site swelling [None]
  - Arteriosclerosis [None]
  - Thrombophlebitis [None]
